FAERS Safety Report 23671039 (Version 1)
Quarter: 2024Q1

REPORT INFORMATION
  Report Type: Spontaneous
  Country: US (occurrence: US)
  Receive Date: 20240326
  Receipt Date: 20240326
  Transmission Date: 20240410
  Serious: Yes (Life-Threatening, Hospitalization)
  Sender: FDA-Public Use
  Company Number: US-TEVA-VS-3173504

PATIENT
  Age: 46 Year
  Sex: Female

DRUGS (2)
  1. EPINEPHRINE [Suspect]
     Active Substance: EPINEPHRINE
     Indication: Drug therapy
     Dosage: (EPINEPHRINE) 3L OF A SOLUTION CONTAINING 35MG OF EPINEPHRINE PER LITRE OF SODIUM CHLORIDE
     Route: 065
  2. SALINE [Concomitant]
     Active Substance: SODIUM CHLORIDE
     Indication: Vehicle solution use
     Dosage: 3L OF A SOLUTION CONTAINING 35MG OF EPINEPHRINE PER LITRE OF SODIUM CHLORIDE
     Route: 065

REACTIONS (6)
  - Cardiogenic shock [Recovering/Resolving]
  - Stress cardiomyopathy [Recovering/Resolving]
  - Hypertension [Unknown]
  - Incorrect dose administered [Unknown]
  - Pulmonary oedema [Unknown]
  - Accidental overdose [Unknown]
